FAERS Safety Report 8604789 (Version 3)
Quarter: 2012Q4

REPORT INFORMATION
  Report Type: 
  Country: ES (occurrence: ES)
  Receive Date: 20120608
  Receipt Date: 20121128
  Transmission Date: 20130627
  Serious: Yes (Other)
  Sender: FDA-Public Use
  Company Number: ES-CELGENEUS-144-21660-12053221

PATIENT
  Sex: Female

DRUGS (5)
  1. ABRAXANE [Suspect]
     Indication: PANCREATIC CANCER
     Route: 065
  2. G-CSF [Concomitant]
     Indication: DRUG USE FOR UNKNOWN INDICATION
     Route: 065
  3. IRON [Concomitant]
     Indication: DRUG USE FOR UNKNOWN INDICATION
     Route: 041
  4. BLOOD [Concomitant]
     Indication: DRUG USE FOR UNKNOWN INDICATION
     Route: 065
  5. GEMCITABINE [Concomitant]
     Indication: PANCREATIC CANCER
     Route: 041

REACTIONS (6)
  - Deafness [Unknown]
  - Cystitis [Unknown]
  - Fatigue [Unknown]
  - Anaemia [Unknown]
  - Thrombocytopenia [Unknown]
  - Alopecia [Unknown]
